FAERS Safety Report 20700782 (Version 1)
Quarter: 2022Q2

REPORT INFORMATION
  Report Type: Spontaneous
  Country: US (occurrence: None)
  Receive Date: 20220411
  Receipt Date: 20220411
  Transmission Date: 20220721
  Serious: Yes (Other)
  Sender: FDA-Public Use
  Company Number: None

PATIENT
  Age: 68 Year
  Sex: Female
  Weight: 82.37 kg

DRUGS (9)
  1. CEPHALEXIN [Suspect]
     Active Substance: CEPHALEXIN
     Indication: Cystitis escherichia
     Dosage: TWICE DAILY MOUTH?
     Route: 048
     Dates: start: 20220323, end: 20220328
  2. AMBIEN [Concomitant]
     Active Substance: ZOLPIDEM TARTRATE
  3. ALPRAZOLAM [Concomitant]
  4. NEXIUM [Concomitant]
  5. TYLENOL [Concomitant]
  6. MULTI-VITAMIN [Concomitant]
  7. CALCIUM [Concomitant]
  8. CHOLECALCIFEROL [Concomitant]
     Active Substance: CHOLECALCIFEROL
  9. POTASSIUM/MAGNISIUM [Concomitant]

REACTIONS (3)
  - Diarrhoea [None]
  - Rash macular [None]
  - Dry skin [None]

NARRATIVE: CASE EVENT DATE: 20220329
